FAERS Safety Report 4777024-8 (Version None)
Quarter: 2005Q3

REPORT INFORMATION
  Report Type: 
  Country: None (occurrence: None)
  Receive Date: 20050923
  Receipt Date: 20050916
  Transmission Date: 20060218
  Serious: Yes (Other)
  Sender: FDA-Public Use
  Company Number: PHNR2005AU01442

PATIENT
  Age: 5 Year
  Sex: Male

DRUGS (1)
  1. RITALIN [Suspect]
     Dosage: 10 MG, UNK
     Route: 048

REACTIONS (2)
  - CEREBROVASCULAR ACCIDENT [None]
  - INFLUENZA [None]
